FAERS Safety Report 5706682-6 (Version None)
Quarter: 2008Q2

REPORT INFORMATION
  Report Type: 
  Country: None (occurrence: None)
  Receive Date: 20080415
  Receipt Date: 20080415
  Transmission Date: 20081010
  Serious: Yes (Other)
  Sender: FDA-Public Use
  Company Number: None

PATIENT
  Age: 42 Year
  Sex: Female

DRUGS (6)
  1. LOTREL [Suspect]
     Indication: HYPERTENSION
     Dosage: ONCE PO QD
     Dates: start: 20050101
  2. LOTREL [Suspect]
     Indication: HYPERTENSION
     Dosage: ONCE PO QD
     Dates: start: 20060101
  3. LOTREL [Suspect]
     Indication: HYPERTENSION
     Dosage: ONCE PO QD
     Dates: start: 20070101
  4. LOTREL [Suspect]
     Indication: HYPERTENSION
     Dosage: ONCE PO QD
     Dates: start: 20080101
  5. NORVASC [Concomitant]
  6. CLONIDINE HCL [Concomitant]

REACTIONS (1)
  - NO ADVERSE EVENT [None]
